FAERS Safety Report 13647966 (Version 1)
Quarter: 2017Q2

REPORT INFORMATION
  Report Type: Spontaneous
  Country: US (occurrence: US)
  Receive Date: 20170613
  Receipt Date: 20170613
  Transmission Date: 20170830
  Serious: Yes (Other)
  Sender: FDA-Public Use
  Company Number: US-TEVA-776852USA

PATIENT
  Sex: Female

DRUGS (2)
  1. VALIUM [Suspect]
     Active Substance: DIAZEPAM
     Route: 065
  2. LORAZEPAM. [Suspect]
     Active Substance: LORAZEPAM

REACTIONS (5)
  - Suicidal ideation [Unknown]
  - Crying [Not Recovered/Not Resolved]
  - Withdrawal syndrome [Unknown]
  - Generalised tonic-clonic seizure [Unknown]
  - Pain [Unknown]
